FAERS Safety Report 6685097-0 (Version None)
Quarter: 2010Q2

REPORT INFORMATION
  Report Type: 
  Country: None (occurrence: None)
  Receive Date: 20100416
  Receipt Date: 20100409
  Transmission Date: 20101027
  Serious: Yes (Other)
  Sender: FDA-Public Use
  Company Number: B0647638A

PATIENT
  Sex: Female

DRUGS (2)
  1. TOPOTECAN [Suspect]
     Dates: start: 20091204, end: 20100111
  2. CARBOPLATIN [Suspect]
     Dates: start: 20091204, end: 20100104

REACTIONS (4)
  - ANAEMIA [None]
  - LEUKOPENIA [None]
  - PANCYTOPENIA [None]
  - THROMBOCYTOPENIA [None]
